FAERS Safety Report 9794155 (Version 2)
Quarter: 2014Q1

REPORT INFORMATION
  Report Type: Spontaneous
  Country: US (occurrence: US)
  Receive Date: 20140102
  Receipt Date: 20140303
  Transmission Date: 20141002
  Serious: No
  Sender: FDA-Public Use
  Company Number: US-AMGEN-USASP2013089303

PATIENT
  Age: 71 Year
  Sex: Female

DRUGS (5)
  1. ENBREL [Suspect]
     Indication: RHEUMATOID ARTHRITIS
     Dosage: 50 MG, QWK
     Route: 065
     Dates: start: 20131205, end: 20131224
  2. PREDNISONE [Concomitant]
     Dosage: 10 MG, UNK
  3. ULORIC [Concomitant]
     Dosage: 40 MG, QD
     Route: 048
  4. SULFASALAZINE [Concomitant]
     Dosage: 500 MG, 2 TABS PO BID
     Route: 048
     Dates: end: 20131224
  5. TIZANIDINE [Concomitant]
     Dosage: 4 MG, BID
     Route: 048

REACTIONS (5)
  - Diarrhoea [Recovered/Resolved]
  - Gastrooesophageal reflux disease [Not Recovered/Not Resolved]
  - Nausea [Recovered/Resolved]
  - Vomiting [Recovered/Resolved]
  - Abdominal discomfort [Recovered/Resolved]
